FAERS Safety Report 11469731 (Version 1)
Quarter: 2015Q3

REPORT INFORMATION
  Report Type: Spontaneous
  Country: US (occurrence: US)
  Receive Date: 20150908
  Receipt Date: 20150908
  Transmission Date: 20151125
  Serious: No
  Sender: FDA-Public Use
  Company Number: US-JNJFOC-20150900310

PATIENT
  Age: 67 Year
  Sex: Male
  Weight: 122.47 kg

DRUGS (3)
  1. PRIMIDONE. [Concomitant]
     Active Substance: PRIMIDONE
     Route: 065
  2. ZYRTEC [Suspect]
     Active Substance: CETIRIZINE HYDROCHLORIDE
     Indication: ACUTE SINUSITIS
     Dosage: HALF TABLET ONCE, TAKING FOR AT LEAST 2 TO 3 YEARS
     Route: 048
  3. ZYRTEC [Suspect]
     Active Substance: CETIRIZINE HYDROCHLORIDE
     Indication: DRUG HYPERSENSITIVITY
     Dosage: HALF TABLET ONCE, TAKING FOR AT LEAST 2 TO 3 YEARS
     Route: 048

REACTIONS (3)
  - Tremor [Recovering/Resolving]
  - Product use issue [Recovering/Resolving]
  - Therapeutic response unexpected [Unknown]
